FAERS Safety Report 5245201-8 (Version None)
Quarter: 2007Q1

REPORT INFORMATION
  Report Type: 
  Country: None (occurrence: None)
  Receive Date: 20070223
  Receipt Date: 20070213
  Transmission Date: 20070707
  Serious: Yes (Life-Threatening, Hospitalization)
  Sender: FDA-Public Use
  Company Number: FR-ROCHE-482608

PATIENT
  Age: 50 Year
  Sex: Male
  Weight: 74 kg

DRUGS (12)
  1. PEG-INTERFERON ALFA 2A (RO 25-8310) [Suspect]
     Indication: HEPATITIS C
     Route: 058
     Dates: start: 20061129, end: 20070130
  2. RIBAVIRIN [Suspect]
     Indication: HEPATITIS C
     Route: 048
     Dates: start: 20061129, end: 20070124
  3. VX-950 [Suspect]
     Indication: HEPATITIS C
     Route: 065
     Dates: start: 20061129, end: 20070130
  4. NAPROXEN [Concomitant]
     Dates: start: 20061218, end: 20061220
  5. TRAMADOL HCL [Concomitant]
     Route: 048
     Dates: start: 20061220, end: 20061221
  6. DOLIPRANE [Concomitant]
     Indication: HEADACHE
     Route: 048
     Dates: start: 20061201
  7. KARDEGIC [Concomitant]
     Indication: HYPERTENSION
     Route: 048
  8. AMLODIPINE [Concomitant]
     Indication: HYPERTENSION
     Route: 048
     Dates: start: 20061123
  9. FORTZAAR [Concomitant]
     Indication: HYPERTENSION
     Route: 048
     Dates: start: 20061123
  10. SOPROL [Concomitant]
     Indication: HYPERTENSION
     Route: 048
     Dates: start: 20061123
  11. AMOXICILLIN TRIHYDRATE [Concomitant]
     Route: 048
     Dates: start: 20061218, end: 20061224
  12. NEXIUM [Concomitant]
     Indication: PROPHYLAXIS
     Route: 048
     Dates: start: 20061220, end: 20061227

REACTIONS (1)
  - SEPTIC SHOCK [None]
